FAERS Safety Report 8069091-3 (Version None)
Quarter: 2012Q1

REPORT INFORMATION
  Report Type: 
  Country: None (occurrence: None)
  Receive Date: 20120125
  Receipt Date: 20120117
  Transmission Date: 20120608
  Serious: No
  Sender: FDA-Public Use
  Company Number: US-PFIZER INC-2012014522

PATIENT
  Sex: Male

DRUGS (1)
  1. VIAGRA [Suspect]
     Indication: SEXUAL DYSFUNCTION
     Dosage: UNK
     Route: 048
     Dates: start: 20120101

REACTIONS (7)
  - FEELING ABNORMAL [None]
  - SKIN DISCOLOURATION [None]
  - PENILE PAIN [None]
  - ERECTION INCREASED [None]
  - PRURITUS GENITAL [None]
  - PENIS DISORDER [None]
  - DISCOMFORT [None]
